FAERS Safety Report 8322010-4 (Version None)
Quarter: 2012Q2

REPORT INFORMATION
  Report Type: 
  Country: None (occurrence: None)
  Receive Date: 20120430
  Receipt Date: 20120419
  Transmission Date: 20120825
  Serious: Yes (Other)
  Sender: FDA-Public Use
  Company Number: NL-AMGEN-NLDSP2012025683

PATIENT
  Age: 11 Year
  Sex: Female

DRUGS (1)
  1. ENBREL [Suspect]
     Indication: JUVENILE ARTHRITIS
     Dosage: 25 MG, WEEKLY
     Dates: start: 20111010

REACTIONS (3)
  - HEMIPARESIS [None]
  - HYPOAESTHESIA ORAL [None]
  - SPEECH DISORDER [None]
